FAERS Safety Report 10368185 (Version 1)
Quarter: 2014Q3

REPORT INFORMATION
  Report Type: Spontaneous
  Country: US (occurrence: None)
  Receive Date: 20140805
  Receipt Date: 20140805
  Transmission Date: 20150326
  Serious: Yes (Hospitalization, Disabling)
  Sender: FDA-Public Use
  Company Number: LIT-14-0033-W

PATIENT
  Age: 59 Year
  Sex: Female

DRUGS (7)
  1. SIMVASTATIN. [Concomitant]
     Active Substance: SIMVASTATIN
  2. LEVOFLOXACIN [Suspect]
     Active Substance: LEVOFLOXACIN
     Indication: INFECTION
  3. LEVOTHYROXINE [Concomitant]
     Active Substance: LEVOTHYROXINE
  4. ATENOLOL. [Concomitant]
     Active Substance: ATENOLOL
  5. ASPIRIN. [Concomitant]
     Active Substance: ASPIRIN
  6. TRAMADOL [Concomitant]
     Active Substance: TRAMADOL
  7. OMEPRAZOLE. [Concomitant]
     Active Substance: OMEPRAZOLE

REACTIONS (6)
  - Major depression [None]
  - Amnesia [None]
  - Paraesthesia [None]
  - Depression [None]
  - Asthenia [None]
  - Dementia [None]
